FAERS Safety Report 22313217 (Version 1)
Quarter: 2023Q2

REPORT INFORMATION
  Report Type: Spontaneous
  Country: DE (occurrence: DE)
  Receive Date: 20230512
  Receipt Date: 20230512
  Transmission Date: 20230721
  Serious: Yes (Hospitalization, Other)
  Sender: FDA-Public Use
  Company Number: None

PATIENT
  Age: 17 Year
  Sex: Female
  Weight: 88 kg

DRUGS (2)
  1. RINVOQ [Suspect]
     Active Substance: UPADACITINIB
     Indication: Neurodermatitis
     Dosage: RINVOQ 15MG?FIRST ADMIN DATE- 04 FEB 2023
     Route: 048
     Dates: end: 20230415
  2. SERTRALINE HYDROCHLORIDE [Concomitant]
     Active Substance: SERTRALINE HYDROCHLORIDE
     Indication: Depression
     Route: 065

REACTIONS (9)
  - Herpes virus infection [Recovered/Resolved]
  - General physical health deterioration [Recovered/Resolved]
  - Aphthous ulcer [Recovered/Resolved]
  - Eczema herpeticum [Recovered/Resolved]
  - Conjunctivitis [Recovered/Resolved]
  - Blepharitis [Recovered/Resolved]
  - Staphylococcal skin infection [Recovered/Resolved]
  - Lymphadenopathy [Unknown]
  - Pyrexia [Recovered/Resolved]

NARRATIVE: CASE EVENT DATE: 20230101
